FAERS Safety Report 5038711-X (Version None)
Quarter: 2006Q2

REPORT INFORMATION
  Report Type: 
  Country: None (occurrence: None)
  Receive Date: 20060629
  Receipt Date: 20060509
  Transmission Date: 20061013
  Serious: No
  Sender: FDA-Public Use
  Company Number: US-BRISTOL-MYERS SQUIBB COMPANY-13373899

PATIENT
  Age: 44 Year
  Sex: Female

DRUGS (3)
  1. REYATAZ [Suspect]
  2. TRUVADA [Concomitant]
  3. LEVOTHYROXINE SODIUM [Concomitant]

REACTIONS (2)
  - RASH MACULO-PAPULAR [None]
  - SWELLING FACE [None]
